FAERS Safety Report 8020015-4 (Version None)
Quarter: 2012Q1

REPORT INFORMATION
  Report Type: 
  Country: None (occurrence: None)
  Receive Date: 20120103
  Receipt Date: 20111222
  Transmission Date: 20120608
  Serious: Yes (Hospitalization, Other)
  Sender: FDA-Public Use
  Company Number: PHHY2011US113588

PATIENT
  Age: 8 Year
  Sex: Male

DRUGS (8)
  1. TOPIRAMATE [Suspect]
     Indication: EPILEPSY
  2. CLOBAZAM [Concomitant]
     Indication: CONVULSION
  3. CARBAMAZEPINE [Suspect]
     Indication: EPILEPSY
  4. LORAZEPAM [Concomitant]
     Indication: EPILEPSY
  5. PHENYTOIN [Concomitant]
     Indication: CONVULSION
  6. PANHEMATIN [Concomitant]
     Route: 042
  7. VALPROIC ACID [Suspect]
     Indication: EPILEPSY
  8. AMOXICILLIN [Concomitant]

REACTIONS (16)
  - HYPERTENSION [None]
  - CHROMATURIA [None]
  - MUSCLE CONTRACTURE [None]
  - STATUS EPILEPTICUS [None]
  - PORPHYRIA ACUTE [None]
  - TACHYCARDIA [None]
  - HYPOTONIA [None]
  - HYPERREFLEXIA [None]
  - CONVULSION [None]
  - HYPONATRAEMIA [None]
  - HYPOPHAGIA [None]
  - HYPERSOMNIA [None]
  - DEPRESSION [None]
  - LETHARGY [None]
  - REGRESSIVE BEHAVIOUR [None]
  - INAPPROPRIATE ANTIDIURETIC HORMONE SECRETION [None]
